FAERS Safety Report 15586673 (Version 1)
Quarter: 2018Q4

REPORT INFORMATION
  Report Type: Spontaneous
  Country: US (occurrence: US)
  Receive Date: 20181105
  Receipt Date: 20181105
  Transmission Date: 20190205
  Serious: Yes (Other)
  Sender: FDA-Public Use
  Company Number: None

PATIENT
  Age: 69 Year
  Sex: Female
  Weight: 51.3 kg

DRUGS (8)
  1. SALINE OPHTHALMIC DROPS [Concomitant]
  2. VITAMIN D [Concomitant]
     Active Substance: CHOLECALCIFEROL
  3. PROGESTERONE (MICRONIZED) [Concomitant]
  4. VITAMIN C [Concomitant]
     Active Substance: ASCORBIC ACID
  5. FLAX OIL [Concomitant]
  6. ESTRADIOL TRANSDERMAL SYSTEM [Suspect]
     Active Substance: ESTRADIOL
     Indication: OSTEOPOROSIS
     Dosage: ?          OTHER STRENGTH:MG/DAY;QUANTITY:1 PATCH(ES);OTHER FREQUENCY:ONE PATCH WEEKLY;?
     Route: 062
     Dates: start: 20180312, end: 20181031
  7. MULTIVITAMIN [Concomitant]
     Active Substance: VITAMINS
  8. CALCIUM/MAGNESIUM [Concomitant]
     Active Substance: CALCIUM\MAGNESIUM

REACTIONS (5)
  - Vaginal haemorrhage [None]
  - Product quality control issue [None]
  - Device issue [None]
  - Abdominal pain [None]
  - Underdose [None]

NARRATIVE: CASE EVENT DATE: 20181024
